FAERS Safety Report 6956945-1 (Version None)
Quarter: 2010Q3

REPORT INFORMATION
  Report Type: 
  Country: None (occurrence: None)
  Receive Date: 20100826
  Receipt Date: 20100812
  Transmission Date: 20110219
  Serious: Yes (Other)
  Sender: FDA-Public Use
  Company Number: 2010AP001741

PATIENT
  Age: 45 Year
  Sex: Female

DRUGS (3)
  1. CYCLOSPORINE [Suspect]
  2. MYCOPHENOLATE MOFETIL [Suspect]
  3. PREDNISONE [Suspect]

REACTIONS (10)
  - ALTERNARIA INFECTION [None]
  - EPSTEIN-BARR VIRUS INFECTION [None]
  - FOLLICULITIS [None]
  - FUNGAL SKIN INFECTION [None]
  - HEART TRANSPLANT REJECTION [None]
  - MYOCARDITIS [None]
  - OPPORTUNISTIC INFECTION [None]
  - PHAEHYPHOMYCOSIS [None]
  - PURULENCE [None]
  - SKIN LESION [None]
